FAERS Safety Report 7217994-1 (Version None)
Quarter: 2011Q1

REPORT INFORMATION
  Report Type: 
  Country: None (occurrence: None)
  Receive Date: 20110110
  Receipt Date: 20110104
  Transmission Date: 20110831
  Serious: Yes (Disabling)
  Sender: FDA-Public Use
  Company Number: B0692453A

PATIENT
  Age: 69 Year
  Sex: Male

DRUGS (2)
  1. URIEF [Concomitant]
     Route: 048
  2. AVOLVE [Suspect]
     Route: 048

REACTIONS (1)
  - HAEMATURIA [None]
